FAERS Safety Report 8552850-8 (Version None)
Quarter: 2012Q3

REPORT INFORMATION
  Report Type: 
  Country: None (occurrence: None)
  Receive Date: 20120731
  Receipt Date: 20120726
  Transmission Date: 20120928
  Serious: Yes (Other)
  Sender: FDA-Public Use
  Company Number: PHHY2010CA11040

PATIENT
  Sex: Male

DRUGS (3)
  1. FLUOROURACIL W/OXALIPLATIN [Concomitant]
  2. CHEMOTHERAPEUTICS NOS [Concomitant]
     Indication: COLORECTAL CANCER
  3. GLEEVEC [Suspect]
     Indication: GASTROINTESTINAL STROMAL TUMOUR
     Dosage: 400 MG, DAILY
     Route: 048
     Dates: start: 20091201, end: 20100101

REACTIONS (6)
  - FATIGUE [None]
  - NEOPLASM RECURRENCE [None]
  - WEIGHT DECREASED [None]
  - DECREASED APPETITE [None]
  - AGEUSIA [None]
  - GASTROINTESTINAL STROMAL TUMOUR [None]
